FAERS Safety Report 11737549 (Version 2)
Quarter: 2015Q4

REPORT INFORMATION
  Report Type: Report from Study
  Country: ES (occurrence: ES)
  Receive Date: 20151113
  Receipt Date: 20151218
  Transmission Date: 20160304
  Serious: Yes (Other)
  Sender: FDA-Public Use
  Company Number: ES-VIIV HEALTHCARE LIMITED-ES2015GSK161259

PATIENT
  Age: 55 Year
  Sex: Male
  Weight: 70 kg

DRUGS (12)
  1. MARAVIROC [Suspect]
     Active Substance: MARAVIROC
     Indication: HIV INFECTION
     Dosage: 150 MG, BID
     Route: 048
     Dates: start: 20130715
  2. CLOPIDOGREL [Concomitant]
     Active Substance: CLOPIDOGREL BISULFATE
     Dosage: 75 MG, UNK
     Dates: start: 2009
  3. ALDOCUMAR [Concomitant]
     Active Substance: WARFARIN SODIUM
     Dosage: 10 MG, UNK
  4. BISOPROLOL [Concomitant]
     Active Substance: BISOPROLOL
     Dosage: 5 MG, UNK
     Dates: start: 2009
  5. RITONAVIR. [Concomitant]
     Active Substance: RITONAVIR
     Dosage: 100 MG, UNK
  6. SEPTRIN [Concomitant]
     Active Substance: SULFAMETHOXAZOLE\TRIMETHOPRIM
     Dosage: 800/160
  7. AAS [Concomitant]
     Active Substance: ASPIRIN
     Dosage: 100 MG, UNK
  8. EPLERONA [Concomitant]
     Dosage: 25 MG, UNK
  9. ROSUVASTATIN [Concomitant]
     Active Substance: ROSUVASTATIN
     Dosage: 10 MG, UNK
     Dates: start: 2009
  10. COBICISTAT + DARUNAVIR [Concomitant]
     Indication: HIV INFECTION
     Dosage: UNK
     Route: 048
     Dates: start: 20150914
  11. ETRAVIRINE [Concomitant]
     Active Substance: ETRAVIRINE
  12. METFORMIN [Concomitant]
     Active Substance: METFORMIN HYDROCHLORIDE
     Dosage: 850 MG, UNK

REACTIONS (1)
  - Acute coronary syndrome [Recovered/Resolved]

NARRATIVE: CASE EVENT DATE: 20150714
